FAERS Safety Report 5983032-1 (Version None)
Quarter: 2008Q4

REPORT INFORMATION
  Report Type: 
  Country: None (occurrence: None)
  Receive Date: 20081208
  Receipt Date: 20081204
  Transmission Date: 20090506
  Serious: Yes (Other)
  Sender: FDA-Public Use
  Company Number: JP-BRISTOL-MYERS SQUIBB COMPANY-14389308

PATIENT
  Age: 61 Year
  Sex: Female

DRUGS (1)
  1. KENACORT [Suspect]
     Indication: MALIGNANT ASCITES
     Route: 033
     Dates: start: 20071002, end: 20071002

REACTIONS (1)
  - GASTROINTESTINAL PERFORATION [None]
